FAERS Safety Report 7250427-8 (Version None)
Quarter: 2011Q1

REPORT INFORMATION
  Report Type: 
  Country: None (occurrence: None)
  Receive Date: 20110128
  Receipt Date: 20110126
  Transmission Date: 20110831
  Serious: Yes (Death)
  Sender: FDA-Public Use
  Company Number: US-B.I. PHARMACEUTICALS,INC./RIDGEFIELD-2011-BP-01600BP

PATIENT
  Sex: Female

DRUGS (2)
  1. PRADAXA [Suspect]
     Indication: DEEP VEIN THROMBOSIS
     Dosage: 300 MG
     Route: 048
     Dates: start: 20101130, end: 20101205
  2. PRADAXA [Suspect]
     Indication: PULMONARY EMBOLISM

REACTIONS (4)
  - RECTAL HAEMORRHAGE [None]
  - BLOOD URINE PRESENT [None]
  - RENAL FAILURE ACUTE [None]
  - EPISTAXIS [None]
